FAERS Safety Report 7751900-6 (Version None)
Quarter: 2011Q3

REPORT INFORMATION
  Report Type: 
  Country: None (occurrence: None)
  Receive Date: 20110915
  Receipt Date: 20110905
  Transmission Date: 20111222
  Serious: Yes (Other)
  Sender: FDA-Public Use
  Company Number: JP-EISAI INC-E2090-01689-SPO-JP

PATIENT
  Age: 71 Year
  Sex: Female

DRUGS (6)
  1. ZONISAMIDE [Suspect]
     Indication: PARKINSON'S DISEASE
     Route: 048
     Dates: start: 20110501, end: 20110101
  2. REQUIP [Concomitant]
  3. TENORMIN [Concomitant]
  4. AKINETON [Concomitant]
  5. SYMMETREL [Concomitant]
  6. ANTI-PARKINSONSIM AGENTS [Concomitant]

REACTIONS (1)
  - DELIRIUM [None]
